FAERS Safety Report 4492483-6 (Version None)
Quarter: 2004Q4

REPORT INFORMATION
  Report Type: 
  Country: None (occurrence: None)
  Receive Date: 20041029
  Receipt Date: 20041021
  Transmission Date: 20050328
  Serious: Yes (Hospitalization)
  Sender: FDA-Public Use
  Company Number: STA-AE-04-MTX-507

PATIENT
  Age: 58 Year
  Sex: Male

DRUGS (8)
  1. RHEUMATREX [Suspect]
     Indication: RHEUMATOID ARTHRITIS
     Dosage: SEE IMAGE
     Route: 048
     Dates: start: 19991105, end: 20000406
  2. RHEUMATREX [Suspect]
     Indication: RHEUMATOID ARTHRITIS
     Dosage: SEE IMAGE
     Route: 048
     Dates: start: 20000407
  3. PREDNISOLONE [Suspect]
     Indication: RHEUMATOID ARTHRITIS
     Dosage: 5 MG Q DAY, ORAL
     Route: 048
     Dates: start: 20031114
  4. CALCIUM LACTATE (CALCIUM LACTATE) [Concomitant]
  5. ONE-ALPHA (ALFACALCIDOL) [Concomitant]
  6. LOXONIN (LOXOPROFEN SODIUM) [Concomitant]
  7. MOBIC [Concomitant]
  8. REMICADE [Suspect]
     Indication: RHEUMATOID ARTHRITIS
     Dosage: 3 MG/KG PER DAY, INTRAVENOUS DRIP
     Route: 041
     Dates: start: 20040304, end: 20040304

REACTIONS (9)
  - ACTIVATED PARTIAL THROMBOPLASTIN TIME PROLONGED [None]
  - BLOOD CREATININE INCREASED [None]
  - BLOOD UREA INCREASED [None]
  - DISSEMINATED INTRAVASCULAR COAGULATION [None]
  - FIBRIN DEGRADATION PRODUCTS INCREASED [None]
  - LOBAR PNEUMONIA [None]
  - PLATELET COUNT DECREASED [None]
  - PNEUMONIA BACTERIAL [None]
  - RENAL DISORDER [None]
